FAERS Safety Report 6782833-X (Version None)
Quarter: 2010Q2

REPORT INFORMATION
  Report Type: 
  Country: None (occurrence: None)
  Receive Date: 20100617
  Receipt Date: 20100601
  Transmission Date: 20101027
  Serious: Yes (Other)
  Sender: FDA-Public Use
  Company Number: 2010SCPR001321

PATIENT
  Age: 45 Year
  Sex: Male

DRUGS (4)
  1. DOXYCYCLINE (DOXYCYCLINE MONOHYDRATE) UNKNOWN [Suspect]
     Indication: NEUROSYPHILIS
     Dosage: 200 MG, BID, ORAL
     Route: 048
  2. EFAVIRENZ [Concomitant]
  3. TENOFOVIR DISOPROXIL FUMARATE [Concomitant]
  4. EMTRICITABINE (EMTRICITABINE) [Concomitant]

REACTIONS (1)
  - ABDOMINAL DISCOMFORT [None]
